FAERS Safety Report 15984990 (Version 1)
Quarter: 2019Q1

REPORT INFORMATION
  Report Type: Spontaneous
  Country: US (occurrence: US)
  Receive Date: 20190220
  Receipt Date: 20190220
  Transmission Date: 20190418
  Serious: No
  Sender: FDA-Public Use
  Company Number: US-WALGREENS PREMIER BRANDS OF AMERICA INC.-2062923

PATIENT
  Sex: Male

DRUGS (2)
  1. LIQUID CORN AND CALLUS REMOVER [Suspect]
     Active Substance: SALICYLIC ACID
     Indication: HYPERKERATOSIS
     Route: 061
     Dates: start: 20190201, end: 20190203
  2. MOTRIN [Concomitant]
     Active Substance: IBUPROFEN

REACTIONS (2)
  - Localised infection [None]
  - Infection [Recovered/Resolved]

NARRATIVE: CASE EVENT DATE: 20190203
